FAERS Safety Report 6505476-1 (Version None)
Quarter: 2009Q4

REPORT INFORMATION
  Report Type: 
  Country: None (occurrence: None)
  Receive Date: 20091218
  Receipt Date: 20091215
  Transmission Date: 20100525
  Serious: Yes (Death)
  Sender: FDA-Public Use
  Company Number: US-GILEAD-2009-0026004

PATIENT
  Sex: Female
  Weight: 54.48 kg

DRUGS (16)
  1. LETAIRIS [Suspect]
     Indication: PULMONARY ARTERIAL HYPERTENSION
     Route: 048
     Dates: start: 20080111
  2. VENTAVIS [Concomitant]
  3. OXYGEN [Concomitant]
  4. SYMBICORT [Concomitant]
  5. EVOXAC [Concomitant]
  6. VITAMIN D [Concomitant]
  7. CALCIUM + D [Concomitant]
  8. FOLIC ACID [Concomitant]
  9. FERROUS SULFATE TAB [Concomitant]
  10. XOPENEX [Concomitant]
  11. URSO 250 [Concomitant]
  12. FOSAMAX [Concomitant]
  13. OS-CAL 500 + D [Concomitant]
  14. PRILOSEC [Concomitant]
  15. MULTI-VITAMIN [Concomitant]
  16. PLAQUENIL [Concomitant]

REACTIONS (1)
  - DEATH [None]
